FAERS Safety Report 20010571 (Version 1)
Quarter: 2021Q4

REPORT INFORMATION
  Report Type: Spontaneous
  Country: US (occurrence: US)
  Receive Date: 20211029
  Receipt Date: 20211029
  Transmission Date: 20220303
  Serious: Yes (Death)
  Sender: FDA-Public Use
  Company Number: None

PATIENT
  Age: 91 Year
  Sex: Female

DRUGS (1)
  1. ENTECAVIR [Suspect]
     Active Substance: ENTECAVIR
     Indication: Hepatitis B
     Route: 048
     Dates: start: 20190808

REACTIONS (1)
  - Death [None]

NARRATIVE: CASE EVENT DATE: 20211028
